FAERS Safety Report 14848520 (Version 1)
Quarter: 2018Q2

REPORT INFORMATION
  Report Type: Report from Study
  Country: US (occurrence: US)
  Receive Date: 20180504
  Receipt Date: 20180504
  Transmission Date: 20180711
  Serious: Yes (Death)
  Sender: FDA-Public Use
  Company Number: US-ASTRAZENECA-2017SF10901

PATIENT
  Age: 19904 Day
  Sex: Female

DRUGS (1)
  1. TAGRISSO [Suspect]
     Active Substance: OSIMERTINIB
     Indication: BRONCHIAL CARCINOMA
     Route: 048

REACTIONS (4)
  - Constipation [Not Recovered/Not Resolved]
  - Death [Fatal]
  - Thrombosis [Unknown]
  - Heart rate increased [Unknown]

NARRATIVE: CASE EVENT DATE: 20180413
